FAERS Safety Report 10715012 (Version 1)
Quarter: 2015Q1

REPORT INFORMATION
  Report Type: Spontaneous
  Country: US (occurrence: US)
  Receive Date: 20150115
  Receipt Date: 20150115
  Transmission Date: 20150721
  Serious: No
  Sender: FDA-Public Use
  Company Number: US-GLAXOSMITHKLINE-US2014034188

PATIENT
  Age: 49 Year
  Sex: Female

DRUGS (2)
  1. ALLI [Suspect]
     Active Substance: ORLISTAT
     Indication: WEIGHT LOSS DIET
     Dosage: UNK
     Route: 048
  2. ALLI [Suspect]
     Active Substance: ORLISTAT
     Dosage: UNK
     Route: 048
     Dates: start: 20141209

REACTIONS (1)
  - Steatorrhoea [Recovered/Resolved]
